FAERS Safety Report 6687114-0 (Version None)
Quarter: 2010Q2

REPORT INFORMATION
  Report Type: 
  Country: None (occurrence: None)
  Receive Date: 20100419
  Receipt Date: 20100407
  Transmission Date: 20101027
  Serious: Yes (Other)
  Sender: FDA-Public Use
  Company Number: GB-WATSON-2010-04905

PATIENT
  Age: 39 Year
  Sex: Female

DRUGS (3)
  1. PREDNISOLONE [Suspect]
     Indication: CROHN'S DISEASE
     Dosage: UNK
     Route: 065
  2. AZATHIOPRINE [Suspect]
     Indication: CROHN'S DISEASE
     Dosage: 150 MG, DAILY
  3. ANTI-TUMOR NECROSIS FACTOR MONOCLON. ANTIBODY [Suspect]
     Indication: DRUG USE FOR UNKNOWN INDICATION
     Dosage: UNK
     Route: 042

REACTIONS (3)
  - BASAL CELL CARCINOMA [None]
  - MALIGNANT MELANOMA [None]
  - SQUAMOUS CELL CARCINOMA [None]
